FAERS Safety Report 23503947 (Version 1)
Quarter: 2024Q1

REPORT INFORMATION
  Report Type: Spontaneous
  Country: EG (occurrence: EG)
  Receive Date: 20240209
  Receipt Date: 20240209
  Transmission Date: 20240409
  Serious: Yes (Other)
  Sender: FDA-Public Use
  Company Number: EG-NOVOPROD-1168939

PATIENT
  Sex: Male

DRUGS (2)
  1. INSULIN HUMAN [Suspect]
     Active Substance: INSULIN HUMAN
     Indication: Product used for unknown indication
     Dosage: UNK
  2. CINNARIZINE [Concomitant]
     Active Substance: CINNARIZINE
     Indication: Blood disorder
     Dosage: 1 SACHET/DAY BEFORE MEAL

REACTIONS (2)
  - Cerebrovascular accident [Unknown]
  - Plantar fasciitis [Recovered/Resolved]

NARRATIVE: CASE EVENT DATE: 20000101
